FAERS Safety Report 4895995-6 (Version None)
Quarter: 2006Q1

REPORT INFORMATION
  Report Type: 
  Country: None (occurrence: None)
  Receive Date: 20060125
  Receipt Date: 20060119
  Transmission Date: 20060701
  Serious: No
  Sender: FDA-Public Use
  Company Number: TAP2006Q00118

PATIENT
  Age: 8 Year
  Sex: Female
  Weight: 45 kg

DRUGS (1)
  1. LUPRON DEPOT [Suspect]
     Indication: PRECOCIOUS PUBERTY
     Dosage: 15 MG, 1 IN 1 M, INTRAMUSCULAR
     Route: 030
     Dates: start: 20050401, end: 20050801

REACTIONS (1)
  - OPTIC NERVE DISORDER [None]
